FAERS Safety Report 5256152-7 (Version None)
Quarter: 2007Q1

REPORT INFORMATION
  Report Type: 
  Country: None (occurrence: None)
  Receive Date: 20070302
  Receipt Date: 20070302
  Transmission Date: 20070707
  Serious: Yes (Life-Threatening, Hospitalization)
  Sender: FDA-Public Use
  Company Number: None

PATIENT
  Sex: Female

DRUGS (2)
  1. METFORMIN HCL [Suspect]
     Indication: DIABETES MELLITUS
     Dosage: 1500MG QAM PO
     Route: 048
     Dates: start: 20060717, end: 20060719
  2. METFORMIN HCL [Suspect]
     Dosage: 1000MG QPM PO
     Route: 048
     Dates: start: 20060717, end: 20060719

REACTIONS (6)
  - LACTIC ACIDOSIS [None]
  - LOSS OF CONSCIOUSNESS [None]
  - METABOLIC ALKALOSIS [None]
  - RENAL FAILURE ACUTE [None]
  - UNRESPONSIVE TO STIMULI [None]
  - UROSEPSIS [None]
